FAERS Safety Report 23667994 (Version 1)
Quarter: 2024Q1

REPORT INFORMATION
  Report Type: Report from Study
  Country: FR (occurrence: FR)
  Receive Date: 20240325
  Receipt Date: 20240325
  Transmission Date: 20240410
  Serious: Yes (Death, Hospitalization, Other)
  Sender: FDA-Public Use
  Company Number: FR-SA-2023SA331214

PATIENT
  Age: 82 Year
  Sex: Male

DRUGS (4)
  1. ALEMTUZUMAB [Suspect]
     Active Substance: ALEMTUZUMAB
     Indication: T-cell prolymphocytic leukaemia
     Dosage: 3 MG, QD (DAY 1)
     Route: 042
     Dates: start: 202307, end: 202307
  2. ALEMTUZUMAB [Suspect]
     Active Substance: ALEMTUZUMAB
     Dosage: 10 MG, QD (DAY 2)
     Route: 042
     Dates: start: 202307, end: 202307
  3. ALEMTUZUMAB [Suspect]
     Active Substance: ALEMTUZUMAB
     Dosage: 30 MG, QD (DAY 3)
     Route: 042
     Dates: start: 202307, end: 202307
  4. ALEMTUZUMAB [Suspect]
     Active Substance: ALEMTUZUMAB
     Dosage: 30 MG, TIW
     Route: 042
     Dates: start: 202307

REACTIONS (8)
  - Death [Fatal]
  - Prosthetic cardiac valve thrombosis [Unknown]
  - Lung disorder [Unknown]
  - Disseminated intravascular coagulation [Unknown]
  - Device related bacteraemia [Unknown]
  - Staphylococcal infection [Unknown]
  - COVID-19 [Unknown]
  - Lymphocytosis [Unknown]

NARRATIVE: CASE EVENT DATE: 20230701
